FAERS Safety Report 9678354 (Version 1)
Quarter: 2013Q4

REPORT INFORMATION
  Report Type: Spontaneous
  Country: US (occurrence: None)
  Receive Date: 20131106
  Receipt Date: 20131106
  Transmission Date: 20140711
  Serious: Yes (Death)
  Sender: FDA-Public Use
  Company Number: SYM-2013-12388

PATIENT
  Age: 73 Year
  Sex: Male

DRUGS (6)
  1. XENAZINE [Suspect]
     Indication: PRODUCT USED FOR UNKNOWN INDICATION
  2. SIMVASTATIN(SIMVASTATIN)(80 MILLIGRAM, TABLET)(SIMVASTATIN) [Concomitant]
  3. ASPIRIN ADLT (ACETYLSALICYLIC ACID)(81 MILLIGRAM, TABLET)(ACETYLSALICYLIC ACID)(81 MILLIGRAM, TABLET)(ACETYLSALICYLIC ACID) [Concomitant]
  4. ZETIA(EZETIMIBE)(10 MILLIGRAM TABLET)(EXETIMIBE) [Concomitant]
  5. COENZYME Q10(UBIDECARENONE)(CAPSULE)(UBIDECARENONE) [Concomitant]
  6. CYTRA K GRA CRYSTAL (MIST. POT. CIT.) (CITRIC ACID, POTASSIUM CITRATE) [Concomitant]

REACTIONS (1)
  - Death [None]
